FAERS Safety Report 6477480-3 (Version None)
Quarter: 2009Q4

REPORT INFORMATION
  Report Type: 
  Country: None (occurrence: None)
  Receive Date: 20091207
  Receipt Date: 20091116
  Transmission Date: 20100525
  Serious: Yes (Hospitalization)
  Sender: FDA-Public Use
  Company Number: US-SANOFI-AVENTIS-2009SA004179

PATIENT
  Age: 80 Year
  Sex: Female
  Weight: 58.97 kg

DRUGS (10)
  1. PLAVIX [Suspect]
     Indication: THROMBOSIS PROPHYLAXIS
     Route: 048
     Dates: start: 20040101
  2. PLAVIX [Suspect]
     Route: 048
     Dates: start: 20040101
  3. PLAVIX [Suspect]
     Indication: TRANSIENT ISCHAEMIC ATTACK
     Route: 048
     Dates: start: 20040101
  4. ALEVE [Concomitant]
     Indication: PAIN
  5. PREDNISONE [Concomitant]
     Indication: POLYMYALGIA RHEUMATICA
  6. SPIRONOLACTONE [Concomitant]
  7. TIMOLOL [Concomitant]
     Indication: EYE DISORDER
  8. BROMALINE [Concomitant]
     Indication: EYE DISORDER
  9. CALCIUM [Concomitant]
     Indication: OSTEOPOROSIS
  10. ALL OTHER THERAPEUTIC PRODUCTS [Concomitant]

REACTIONS (7)
  - BACK PAIN [None]
  - BRADYCARDIA [None]
  - FALL [None]
  - LIMB INJURY [None]
  - LOSS OF CONSCIOUSNESS [None]
  - LUMBAR VERTEBRAL FRACTURE [None]
  - PAIN [None]
